FAERS Safety Report 18249197 (Version 3)
Quarter: 2020Q3

REPORT INFORMATION
  Report Type: Spontaneous
  Country: US (occurrence: US)
  Receive Date: 20200909
  Receipt Date: 20200914
  Transmission Date: 20201103
  Serious: Yes (Other)
  Sender: FDA-Public Use
  Company Number: US-PFIZER INC-2020347867

PATIENT
  Age: 33 Year
  Sex: Male
  Weight: 1.15 kg

DRUGS (2)
  1. AZITHROMYCIN ANHYDROUS. [Suspect]
     Active Substance: AZITHROMYCIN ANHYDROUS
     Indication: EAR INFECTION
     Dosage: UNK
  2. AMOXICILLIN. [Concomitant]
     Active Substance: AMOXICILLIN
     Indication: INFECTION
     Dosage: UNK

REACTIONS (5)
  - Haemorrhage [Unknown]
  - Thermal burn [Recovering/Resolving]
  - Back pain [Recovering/Resolving]
  - Skin haemorrhage [Recovering/Resolving]
  - Headache [Recovering/Resolving]
